FAERS Safety Report 8260861-5 (Version None)
Quarter: 2012Q2

REPORT INFORMATION
  Report Type: 
  Country: None (occurrence: None)
  Receive Date: 20120402
  Receipt Date: 20120322
  Transmission Date: 20120825
  Serious: Yes (Other)
  Sender: FDA-Public Use
  Company Number: 2012-028687

PATIENT
  Age: 88 Year
  Sex: Female
  Weight: 63 kg

DRUGS (1)
  1. BAYER WOMEN'S LOW STRENGTH ASPIRIN REGIMEN (ACETYLSALICYLIC ACID + CAL [Suspect]
     Indication: ISCHAEMIC HEART DISEASE PROPHYLAXIS
     Dosage: 1 DF, QD, ORAL
     Route: 048
     Dates: start: 20120301

REACTIONS (1)
  - CHOKING [None]
